FAERS Safety Report 6981408-7 (Version None)
Quarter: 2010Q3

REPORT INFORMATION
  Report Type: 
  Country: None (occurrence: None)
  Receive Date: 20100914
  Receipt Date: 20100910
  Transmission Date: 20110219
  Serious: Yes (Other)
  Sender: FDA-Public Use
  Company Number: SE-BRISTOL-MYERS SQUIBB COMPANY-15258825

PATIENT
  Age: 62 Year
  Sex: Female

DRUGS (6)
  1. PARAPLATIN [Suspect]
     Dosage: LAST DOSE IN JUN10
     Dates: start: 20100324
  2. PAXENE [Suspect]
     Dosage: 2ND TREATMENT ON 19APR10(300MG),3RD ON 10MAY10(300MG), DOSE REDUCED-4TH ON 01JUN10(270MG)
     Dates: start: 20100325
  3. OMEPRAZOLE [Concomitant]
     Dosage: AT NIGHT
  4. ACETAMINOPHEN [Concomitant]
     Dosage: AT NIGHT
  5. ZOLPIDEM [Concomitant]
     Dosage: AT NIGHT
  6. PROPIOMAZINE [Concomitant]
     Dosage: AT NIGHT

REACTIONS (4)
  - ARTHRALGIA [None]
  - GAIT DISTURBANCE [None]
  - HAEMORRHAGE [None]
  - NEUROPATHY PERIPHERAL [None]
